FAERS Safety Report 11430653 (Version 1)
Quarter: 2015Q3

REPORT INFORMATION
  Report Type: Spontaneous
  Country: US (occurrence: US)
  Receive Date: 20150828
  Receipt Date: 20150828
  Transmission Date: 20151125
  Serious: No
  Sender: FDA-Public Use
  Company Number: PHHY2014US052467

PATIENT
  Age: 36 Year
  Sex: Female

DRUGS (14)
  1. BACLOFEN INTRATHECAL [Suspect]
     Active Substance: BACLOFEN
     Dosage: UNK (2200 MCG/ML)
     Route: 037
  2. FENTANYL. [Suspect]
     Active Substance: FENTANYL
     Indication: PRODUCT USED FOR UNKNOWN INDICATION
     Route: 065
  3. CELEXA [Suspect]
     Active Substance: CITALOPRAM HYDROBROMIDE
     Indication: PRODUCT USED FOR UNKNOWN INDICATION
     Route: 065
  4. FENTANYL. [Suspect]
     Active Substance: FENTANYL
     Dosage: 649.2 UG, QD (8 PERCENT INCREASE)
     Route: 065
  5. DILAUDID [Suspect]
     Active Substance: HYDROMORPHONE HYDROCHLORIDE
     Indication: PAIN
     Dosage: 6.1 MG/DAY (24 MG/ML)
     Route: 037
  6. PROCRIT [Suspect]
     Active Substance: ERYTHROPOIETIN
     Indication: PRODUCT USED FOR UNKNOWN INDICATION
     Route: 065
  7. DILAUDID [Suspect]
     Active Substance: HYDROMORPHONE HYDROCHLORIDE
     Dosage: 10.387 MG, QD (28 MG/ML)
     Route: 037
  8. VALIUM [Suspect]
     Active Substance: DIAZEPAM
     Indication: PRODUCT USED FOR UNKNOWN INDICATION
     Route: 065
  9. BACLOFEN INTRATHECAL [Suspect]
     Active Substance: BACLOFEN
     Indication: PAIN
     Dosage: 900 UG, QD (3500 MCG/ML)
     Route: 037
  10. BENADRYL [Suspect]
     Active Substance: DIPHENHYDRAMINE HYDROCHLORIDE
     Indication: PRODUCT USED FOR UNKNOWN INDICATION
     Route: 065
  11. BACLOFEN INTRATHECAL [Suspect]
     Active Substance: BACLOFEN
     Dosage: 816.1 UG, QD
     Route: 037
  12. ESTRADIOL. [Suspect]
     Active Substance: ESTRADIOL
     Indication: PRODUCT USED FOR UNKNOWN INDICATION
     Route: 065
  13. AMBIEN [Suspect]
     Active Substance: ZOLPIDEM TARTRATE
     Indication: PRODUCT USED FOR UNKNOWN INDICATION
     Route: 065
  14. KEPPRA [Suspect]
     Active Substance: LEVETIRACETAM
     Indication: PRODUCT USED FOR UNKNOWN INDICATION
     Route: 065

REACTIONS (1)
  - Pain [Unknown]

NARRATIVE: CASE EVENT DATE: 20140413
